FAERS Safety Report 7806643-7 (Version None)
Quarter: 2011Q4

REPORT INFORMATION
  Report Type: 
  Country: None (occurrence: None)
  Receive Date: 20111011
  Receipt Date: 20111006
  Transmission Date: 20120403
  Serious: Yes (Other)
  Sender: FDA-Public Use
  Company Number: US-JNJFOC-20110404305

PATIENT
  Sex: Female

DRUGS (2)
  1. LEVAQUIN [Suspect]
     Indication: LIMB INJURY
     Route: 065
  2. ^VITAMINS^ (NOS) [Concomitant]

REACTIONS (1)
  - TENDON RUPTURE [None]
